FAERS Safety Report 9049088 (Version 1)
Quarter: 2013Q1

REPORT INFORMATION
  Report Type: Report from Study
  Country: CA (occurrence: CA)
  Receive Date: 20130205
  Receipt Date: 20130205
  Transmission Date: 20140127
  Serious: Yes (Death)
  Sender: FDA-Public Use
  Company Number: CA-ROCHE-1186920

PATIENT
  Sex: Female

DRUGS (17)
  1. RITUXAN [Suspect]
     Indication: GRANULOMATOSIS WITH POLYANGIITIS
     Route: 042
     Dates: start: 20130116, end: 20130116
  2. ALENDRONATE [Concomitant]
  3. OMEPRAZOLE [Concomitant]
  4. PREDNISONE [Concomitant]
  5. SYNTHROID [Concomitant]
  6. ROSUVASTATIN [Concomitant]
  7. FUROSEMIDE [Concomitant]
  8. SULFATRIM DS [Concomitant]
  9. FERROUS SULPHATE [Concomitant]
  10. ASA [Concomitant]
  11. LYRICA [Concomitant]
  12. AMLODIPINE [Concomitant]
  13. GLICLAZIDE [Concomitant]
  14. SLOW-K [Concomitant]
  15. SERTRALINE [Concomitant]
  16. LOVENOX [Concomitant]
     Route: 065
  17. COUMADIN [Concomitant]

REACTIONS (1)
  - Death [Fatal]
